FAERS Safety Report 10239702 (Version 2)
Quarter: 2014Q2

REPORT INFORMATION
  Report Type: Spontaneous
  Country: GB (occurrence: GB)
  Receive Date: 20140616
  Receipt Date: 20140620
  Transmission Date: 20141212
  Serious: Yes (Life-Threatening, Hospitalization)
  Sender: FDA-Public Use
  Company Number: GB-TEVA-487149ISR

PATIENT
  Age: 58 Year
  Sex: Female
  Weight: 45 kg

DRUGS (4)
  1. LAMOTRIGINE [Suspect]
     Indication: EPILEPSY
     Dosage: 200 MILLIGRAM DAILY;
     Route: 048
     Dates: start: 20131029, end: 20140520
  2. LAMOTRIGINE [Suspect]
     Dosage: 100 MILLIGRAM DAILY;
     Route: 048
     Dates: start: 2014
  3. PHENYTOIN [Suspect]
     Indication: EPILEPSY
     Dosage: 300 MILLIGRAM DAILY;
     Route: 048
     Dates: end: 20140520
  4. FYCOMPA [Suspect]
     Indication: EPILEPSY
     Dosage: 2 MILLIGRAM DAILY; 2MG ONCE DAILY FOR 2 WEEKS, INCREASING BY 2MG EVERY 2 WEEKS TO 6MG ONCE DAILY
     Route: 048
     Dates: start: 20140416, end: 20140520

REACTIONS (4)
  - Intentional overdose [Not Recovered/Not Resolved]
  - Intestinal dilatation [Not Recovered/Not Resolved]
  - Unresponsive to stimuli [Not Recovered/Not Resolved]
  - Dyspnoea [Not Recovered/Not Resolved]
